FAERS Safety Report 8152279-0 (Version None)
Quarter: 2012Q1

REPORT INFORMATION
  Report Type: 
  Country: None (occurrence: None)
  Receive Date: 20120221
  Receipt Date: 20120217
  Transmission Date: 20120608
  Serious: Yes (Other)
  Sender: FDA-Public Use
  Company Number: JP-PFIZER INC-2012041192

PATIENT
  Age: 71 Year
  Sex: Female

DRUGS (3)
  1. URSO 250 [Concomitant]
     Indication: LIVER DISORDER
     Dosage: 600MG DAILY
     Route: 048
     Dates: end: 20120212
  2. VARENICLINE TARTRATE [Suspect]
     Indication: SMOKING CESSATION THERAPY
     Dosage: 0.5 MG, 1X/DAY
     Route: 048
     Dates: start: 20120211
  3. URSO 250 [Concomitant]
     Dosage: 900MG DAILY
     Route: 048
     Dates: start: 20120213

REACTIONS (1)
  - HEPATIC FUNCTION ABNORMAL [None]
